FAERS Safety Report 13915560 (Version 2)
Quarter: 2017Q4

REPORT INFORMATION
  Report Type: Report from Study
  Country: None (occurrence: US)
  Receive Date: 20170829
  Receipt Date: 20171120
  Transmission Date: 20180320
  Serious: Yes (Hospitalization, Other)
  Sender: FDA-Public Use
  Company Number: US-ABBVIE-16K-163-1820407-00

PATIENT
  Age: 76 Year
  Sex: Male

DRUGS (2)
  1. HUMIRA [Suspect]
     Active Substance: ADALIMUMAB
     Indication: PSORIATIC ARTHROPATHY
  2. HUMIRA [Suspect]
     Active Substance: ADALIMUMAB
     Indication: PSORIASIS
     Route: 058
     Dates: start: 201608

REACTIONS (8)
  - Abdominal hernia [Unknown]
  - Onychomycosis [Unknown]
  - Erythema [Unknown]
  - Drug hypersensitivity [Unknown]
  - Atrial fibrillation [Unknown]
  - Pruritus [Unknown]
  - Psoriasis [Unknown]
  - Cardiac ablation [Unknown]

NARRATIVE: CASE EVENT DATE: 2016
